FAERS Safety Report 17505568 (Version 2)
Quarter: 2021Q1

REPORT INFORMATION
  Report Type: Spontaneous
  Country: US (occurrence: US)
  Receive Date: 20200306
  Receipt Date: 20210302
  Transmission Date: 20210419
  Serious: Yes (Other)
  Sender: FDA-Public Use
  Company Number: US-ASTRAZENECA-2020SE31868

PATIENT
  Age: 57 Year
  Sex: Female
  Weight: 90.7 kg

DRUGS (45)
  1. PAROXETINE. [Concomitant]
     Active Substance: PAROXETINE
  2. SERTRALINE [Concomitant]
     Active Substance: SERTRALINE HYDROCHLORIDE
  3. PHENTERMINE. [Concomitant]
     Active Substance: PHENTERMINE
  4. PRILOSEC [Suspect]
     Active Substance: OMEPRAZOLE MAGNESIUM
     Indication: GASTROOESOPHAGEAL REFLUX DISEASE
     Dosage: GENERIC??10 MG TO START THEN 20 MG
     Route: 065
  5. METHYLPREDNISOLONE. [Concomitant]
     Active Substance: METHYLPREDNISOLONE
  6. CIPROFLOXACIN. [Concomitant]
     Active Substance: CIPROFLOXACIN
  7. NEXIUM [Suspect]
     Active Substance: ESOMEPRAZOLE MAGNESIUM
     Indication: GASTROOESOPHAGEAL REFLUX DISEASE
     Route: 048
     Dates: start: 2001, end: 2016
  8. PREVACID 24 HR [Suspect]
     Active Substance: LANSOPRAZOLE
     Indication: GASTROOESOPHAGEAL REFLUX DISEASE
     Route: 065
     Dates: start: 199801, end: 201604
  9. TRIAMTERENE. [Concomitant]
     Active Substance: TRIAMTERENE
  10. FLUVIRIN NOS [Concomitant]
     Active Substance: INFLUENZA VIRUS VACCINE
  11. PAROXETINE. [Concomitant]
     Active Substance: PAROXETINE
  12. PRILOSEC [Suspect]
     Active Substance: OMEPRAZOLE MAGNESIUM
     Indication: GASTROOESOPHAGEAL REFLUX DISEASE
     Route: 048
     Dates: start: 199801, end: 201604
  13. PREVACID [Suspect]
     Active Substance: LANSOPRAZOLE
     Indication: GASTROOESOPHAGEAL REFLUX DISEASE
     Route: 065
     Dates: start: 1998, end: 2016
  14. ZOLPIDEM [Concomitant]
     Active Substance: ZOLPIDEM TARTRATE
  15. AZITHROMYCIN ANHYDROUS. [Concomitant]
     Active Substance: AZITHROMYCIN ANHYDROUS
  16. PREVACID 24 HR [Suspect]
     Active Substance: LANSOPRAZOLE
     Indication: GASTROOESOPHAGEAL REFLUX DISEASE
     Route: 065
     Dates: start: 2009, end: 2016
  17. PROAIR HFA [Concomitant]
     Active Substance: ALBUTEROL SULFATE
  18. PAROXETINE. [Concomitant]
     Active Substance: PAROXETINE
  19. ALPRAZOLAM. [Concomitant]
     Active Substance: ALPRAZOLAM
  20. QUETIAPINE. [Concomitant]
     Active Substance: QUETIAPINE
  21. ATORVASTATIN [Concomitant]
     Active Substance: ATORVASTATIN
  22. PREMPRO [Concomitant]
     Active Substance: ESTROGENS, CONJUGATED\MEDROXYPROGESTERONE ACETATE
  23. FLUTICASONE. [Concomitant]
     Active Substance: FLUTICASONE
  24. SULFAMETHOXAZOLE [Concomitant]
     Active Substance: SULFAMETHOXAZOLE
  25. BUPAP [Concomitant]
     Active Substance: ACETAMINOPHEN\BUTALBITAL
  26. CLINDAMYCIN. [Concomitant]
     Active Substance: CLINDAMYCIN
  27. DOXYCYCLINE. [Concomitant]
     Active Substance: DOXYCYCLINE
  28. VENTOLIN [Concomitant]
     Active Substance: ALBUTEROL SULFATE
  29. TIZANIDINE. [Concomitant]
     Active Substance: TIZANIDINE
  30. KLOR?CON [Concomitant]
     Active Substance: POTASSIUM CHLORIDE
  31. HYDROCODONE [Concomitant]
     Active Substance: HYDROCODONE
  32. LEVAQUIN [Concomitant]
     Active Substance: LEVOFLOXACIN
  33. PREVACID [Suspect]
     Active Substance: LANSOPRAZOLE
     Indication: GASTROOESOPHAGEAL REFLUX DISEASE
     Route: 065
     Dates: start: 199801, end: 201604
  34. CONSTULOSE [Concomitant]
     Active Substance: LACTULOSE
  35. DILTIAZEM. [Concomitant]
     Active Substance: DILTIAZEM
  36. CEPHALEXIN. [Concomitant]
     Active Substance: CEPHALEXIN
  37. AMITRIPTYLINE [Concomitant]
     Active Substance: AMITRIPTYLINE
  38. PRILOSEC [Suspect]
     Active Substance: OMEPRAZOLE MAGNESIUM
     Indication: GASTROOESOPHAGEAL REFLUX DISEASE
     Route: 048
     Dates: start: 1998, end: 2016
  39. CARBAMAZEPINE. [Concomitant]
     Active Substance: CARBAMAZEPINE
  40. ACETAMINOPHEN. [Concomitant]
     Active Substance: ACETAMINOPHEN
  41. FLUCONAZOLE. [Concomitant]
     Active Substance: FLUCONAZOLE
  42. CETIRIZINE [Concomitant]
     Active Substance: CETIRIZINE HYDROCHLORIDE
  43. ANTIPYRINE [Concomitant]
     Active Substance: ANTIPYRINE
  44. PREDNISONE. [Concomitant]
     Active Substance: PREDNISONE
  45. NEXIUM [Suspect]
     Active Substance: ESOMEPRAZOLE MAGNESIUM
     Indication: GASTROOESOPHAGEAL REFLUX DISEASE
     Route: 048
     Dates: start: 199801, end: 201604

REACTIONS (3)
  - Acute kidney injury [Not Recovered/Not Resolved]
  - Tubulointerstitial nephritis [Unknown]
  - Chronic kidney disease [Not Recovered/Not Resolved]

NARRATIVE: CASE EVENT DATE: 2017
